FAERS Safety Report 8400333-8 (Version None)
Quarter: 2012Q2

REPORT INFORMATION
  Report Type: 
  Country: None (occurrence: None)
  Receive Date: 20120531
  Receipt Date: 20120521
  Transmission Date: 20120825
  Serious: Yes (Hospitalization)
  Sender: FDA-Public Use
  Company Number: US-ACTELION-A-US2012-66181

PATIENT

DRUGS (3)
  1. TRACLEER [Suspect]
     Indication: PULMONARY ARTERIAL HYPERTENSION
     Dosage: UNK
     Route: 048
     Dates: start: 20110222
  2. REMODULIN [Suspect]
     Indication: PULMONARY ARTERIAL HYPERTENSION
  3. COUMADIN [Concomitant]

REACTIONS (8)
  - HEADACHE [None]
  - MUSCLE SPASMS [None]
  - PYREXIA [None]
  - NAUSEA [None]
  - VOMITING [None]
  - CHEST DISCOMFORT [None]
  - DEVICE RELATED INFECTION [None]
  - PALPITATIONS [None]
